FAERS Safety Report 19260207 (Version 4)
Quarter: 2022Q1

REPORT INFORMATION
  Report Type: Spontaneous
  Country: GB (occurrence: GB)
  Receive Date: 20210514
  Receipt Date: 20220216
  Transmission Date: 20220423
  Serious: Yes (Disabling, Other)
  Sender: FDA-Public Use
  Company Number: None

PATIENT
  Age: 24 Year
  Sex: Male

DRUGS (12)
  1. RISPERIDONE [Suspect]
     Active Substance: RISPERIDONE
     Indication: Product used for unknown indication
     Dosage: UNK
     Route: 048
  2. CITALOPRAM [Suspect]
     Active Substance: CITALOPRAM HYDROBROMIDE
     Indication: Product used for unknown indication
     Dosage: 10 MG (10 MG INITIALLY)
     Route: 048
     Dates: start: 201507
  3. MIRTAZAPINE [Suspect]
     Active Substance: MIRTAZAPINE
     Indication: Antidepressant therapy
     Dosage: 7.5 MG (7.5MG-UPTITRATED TO 45MG DAILY THEN REDUCED DOWN TO STOP)
     Route: 048
     Dates: start: 2014, end: 2015
  4. MIRTAZAPINE [Suspect]
     Active Substance: MIRTAZAPINE
     Dosage: 45 MG (45 MILLIGRAM (7.5MG-UPTITRATED YO 45MG DAILY THEN REDUCED TO DOWN TO STOP)
     Route: 048
     Dates: start: 2015, end: 2015
  5. SERTRALINE [Suspect]
     Active Substance: SERTRALINE HYDROCHLORIDE
     Indication: Antidepressant therapy
     Dosage: 50 MG (50 MG INITIALLY THEN 100 MG)
     Route: 048
     Dates: start: 2014
  6. SERTRALINE [Suspect]
     Active Substance: SERTRALINE HYDROCHLORIDE
     Dosage: 100 MG
     Route: 048
     Dates: start: 2014
  7. TEMAZEPAM [Suspect]
     Active Substance: TEMAZEPAM
     Indication: Poor quality sleep
     Dosage: 10 MG, QD (DAILY)
     Route: 065
  8. TRAZODONE [Suspect]
     Active Substance: TRAZODONE HYDROCHLORIDE
     Indication: Antidepressant therapy
     Dosage: 50 MG
     Route: 048
     Dates: start: 2015, end: 2015
  9. TRAZODONE [Suspect]
     Active Substance: TRAZODONE HYDROCHLORIDE
     Indication: Poor quality sleep
     Dosage: 100 MG, QD (100 MILLIGRAM, QD INCREASED TO 100 MG DAILY)
     Route: 048
     Dates: start: 2015, end: 2015
  10. CIPRALEX [Suspect]
     Active Substance: ESCITALOPRAM OXALATE
     Indication: Antidepressant therapy
     Dosage: 10 MILLIGRAM, DAILY, 10 MG DAILY
     Route: 048
     Dates: start: 201507, end: 201509
  11. CIPRALEX [Suspect]
     Active Substance: ESCITALOPRAM OXALATE
     Indication: Morganella infection
  12. ESCITALOPRAM [Suspect]
     Active Substance: ESCITALOPRAM OXALATE
     Indication: Antidepressant therapy
     Dosage: 10 MG, QD
     Route: 065
     Dates: end: 201509

REACTIONS (22)
  - Agitation [Unknown]
  - Mood swings [Unknown]
  - Irritability [Unknown]
  - Suicidal ideation [Unknown]
  - Suicide attempt [Unknown]
  - Paranoia [Unknown]
  - Intrusive thoughts [Unknown]
  - Homicidal ideation [Unknown]
  - Anger [Unknown]
  - Loss of libido [Unknown]
  - Hallucination, visual [Unknown]
  - Hallucination, auditory [Unknown]
  - Psychotic disorder [Unknown]
  - Amnesia [Unknown]
  - Tachyphrenia [Unknown]
  - Feeling abnormal [Unknown]
  - Somnolence [Unknown]
  - Insomnia [Unknown]
  - Sedation [Unknown]
  - Nausea [Unknown]
  - Confusional state [Unknown]
  - Headache [Unknown]
